FAERS Safety Report 17257029 (Version 1)
Quarter: 2020Q1

REPORT INFORMATION
  Report Type: Report from Study
  Country: None (occurrence: CA)
  Receive Date: 20200110
  Receipt Date: 20200110
  Transmission Date: 20200409
  Serious: Yes (Other)
  Sender: FDA-Public Use
  Company Number: CA-ABBVIE-20K-028-3227293-00

PATIENT
  Age: 44 Year
  Sex: Female

DRUGS (1)
  1. LUPRON DEPOT [Suspect]
     Active Substance: LEUPROLIDE ACETATE
     Indication: UTERINE LEIOMYOMA
     Route: 030
     Dates: start: 20190119, end: 20190514

REACTIONS (4)
  - Vertigo [Unknown]
  - Dizziness [Unknown]
  - Central nervous system lesion [Unknown]
  - Nausea [Unknown]

NARRATIVE: CASE EVENT DATE: 201902
